FAERS Safety Report 5784277-6 (Version None)
Quarter: 2008Q2

REPORT INFORMATION
  Report Type: 
  Country: None (occurrence: None)
  Receive Date: 20080624
  Receipt Date: 20070430
  Transmission Date: 20081010
  Serious: No
  Sender: FDA-Public Use
  Company Number: US-ASTRAZENECA-2007UW08800

PATIENT
  Sex: Male

DRUGS (2)
  1. PULMICORT RESPULES [Suspect]
     Route: 055
     Dates: start: 20060101
  2. EYE DROPS [Concomitant]
     Route: 047

REACTIONS (4)
  - COUGH [None]
  - HYPERTHYROIDISM [None]
  - MALAISE [None]
  - WEIGHT DECREASED [None]
